FAERS Safety Report 6732633-1 (Version None)
Quarter: 2010Q2

REPORT INFORMATION
  Report Type: 
  Country: None (occurrence: None)
  Receive Date: 20100517
  Receipt Date: 20100511
  Transmission Date: 20101027
  Serious: Yes (Death)
  Sender: FDA-Public Use
  Company Number: 2010SP022687

PATIENT
  Age: 64 Year
  Sex: Male

DRUGS (15)
  1. MIRTAZAPINE [Suspect]
     Indication: DEPRESSION
     Dosage: 15 MG;QD;PO, 30 MG;QD;PO, 45 MG;QD;PO
     Route: 048
     Dates: start: 20091230, end: 20100318
  2. MIRTAZAPINE [Suspect]
     Indication: INSOMNIA
     Dosage: 15 MG;QD;PO, 30 MG;QD;PO, 45 MG;QD;PO
     Route: 048
     Dates: start: 20091230, end: 20100318
  3. MIRTAZAPINE [Suspect]
     Indication: DEPRESSION
     Dosage: 15 MG;QD;PO, 30 MG;QD;PO, 45 MG;QD;PO
     Route: 048
     Dates: start: 20100319, end: 20100329
  4. MIRTAZAPINE [Suspect]
     Indication: INSOMNIA
     Dosage: 15 MG;QD;PO, 30 MG;QD;PO, 45 MG;QD;PO
     Route: 048
     Dates: start: 20100319, end: 20100329
  5. MIRTAZAPINE [Suspect]
     Indication: DEPRESSION
     Dosage: 15 MG;QD;PO, 30 MG;QD;PO, 45 MG;QD;PO
     Route: 048
     Dates: start: 20100330, end: 20100411
  6. MIRTAZAPINE [Suspect]
     Indication: INSOMNIA
     Dosage: 15 MG;QD;PO, 30 MG;QD;PO, 45 MG;QD;PO
     Route: 048
     Dates: start: 20100330, end: 20100411
  7. TRIAZOLAM [Concomitant]
  8. FLUVOXAMINE MALEATE [Concomitant]
  9. ZOLPIDEM TARTRATE [Concomitant]
  10. ALPRAZOLAM [Concomitant]
  11. SULPIRIDE [Concomitant]
  12. ROSUVASTATIN CALCIUM [Concomitant]
  13. TRAZODONE HYDROCHLORIDE [Concomitant]
  14. HALCION [Concomitant]
  15. DORAL [Concomitant]

REACTIONS (5)
  - COMPLETED SUICIDE [None]
  - DYSURIA [None]
  - INSOMNIA [None]
  - NERVOUSNESS [None]
  - PALPITATIONS [None]
